FAERS Safety Report 24200734 (Version 1)
Quarter: 2024Q3

REPORT INFORMATION
  Report Type: Spontaneous
  Country: FR (occurrence: FR)
  Receive Date: 20240812
  Receipt Date: 20240812
  Transmission Date: 20241016
  Serious: Yes (Congenital Anomaly, Other)
  Sender: GLAXOSMITHKLINE
  Company Number: None

PATIENT

DRUGS (3)
  1. VALACYCLOVIR HYDROCHLORIDE [Suspect]
     Active Substance: VALACYCLOVIR HYDROCHLORIDE
     Indication: Eczema herpeticum
     Dosage: 1 G, QD
     Route: 048
     Dates: start: 202402, end: 20240216
  2. NOVATREX (AZITHROMYCIN) [Suspect]
     Active Substance: AZITHROMYCIN DIHYDRATE
     Indication: Dermatitis atopic
     Dosage: UNK
     Route: 065
     Dates: start: 202307, end: 202309
  3. DUPIXENT [Suspect]
     Active Substance: DUPILUMAB
     Indication: Dermatitis atopic
     Dosage: 1 DF (15 DAYS)
     Route: 058
     Dates: start: 20240216, end: 20240514

REACTIONS (2)
  - Benign hydatidiform mole [Recovered/Resolved]
  - Exposure during pregnancy [Unknown]

NARRATIVE: CASE EVENT DATE: 20240501
